FAERS Safety Report 22912729 (Version 5)
Quarter: 2024Q1

REPORT INFORMATION
  Report Type: Spontaneous
  Country: CA (occurrence: CA)
  Receive Date: 20230906
  Receipt Date: 20240125
  Transmission Date: 20240409
  Serious: Yes (Other)
  Sender: FDA-Public Use
  Company Number: CA-PFIZER INC-202300034488

PATIENT
  Age: 45 Year
  Sex: Female

DRUGS (3)
  1. SOMATROPIN [Suspect]
     Active Substance: SOMATROPIN
     Indication: Growth hormone deficiency
     Dosage: 300 UG, WEEKLY (0.3 MG, 7 DAYS/WEEK (5.3MG PEN)
     Route: 058
     Dates: start: 2023, end: 2023
  2. SOMATROPIN [Suspect]
     Active Substance: SOMATROPIN
     Dosage: 500 UG (0.5 MG, 7 DAYS/WEEK (5.3MG PEN/DOSE: 0.5 MG/ DAY TO BE DISPENSED EVERY 85 DAYS)
     Route: 058
     Dates: start: 2023
  3. SOMATROPIN [Suspect]
     Active Substance: SOMATROPIN
     Dosage: 500 UG, WEEKLY (DOSAGE FREQUENCY: UNKNOWNGOQUICK 12MG/ML PEN NOT YET STARTED)
     Route: 058

REACTIONS (3)
  - Blood glucose decreased [Unknown]
  - Sleep apnoea syndrome [Not Recovered/Not Resolved]
  - Somnolence [Unknown]

NARRATIVE: CASE EVENT DATE: 20230101
